FAERS Safety Report 7609874-4 (Version None)
Quarter: 2011Q3

REPORT INFORMATION
  Report Type: 
  Country: None (occurrence: None)
  Receive Date: 20110714
  Receipt Date: 20110704
  Transmission Date: 20111222
  Serious: Yes (Death)
  Sender: FDA-Public Use
  Company Number: TW-BAXTER-2011BH005016

PATIENT
  Sex: Male

DRUGS (4)
  1. DIANEAL [Suspect]
     Route: 033
     Dates: start: 20090401
  2. DIANEAL [Suspect]
     Route: 033
     Dates: start: 20090401
  3. DIANEAL [Suspect]
     Indication: PERITONEAL DIALYSIS
     Route: 033
     Dates: start: 20090401
  4. DIANEAL [Suspect]
     Route: 033
     Dates: start: 20090401

REACTIONS (1)
  - CARDIOVASCULAR DISORDER [None]
